FAERS Safety Report 9172191 (Version 1)
Quarter: 2013Q1

REPORT INFORMATION
  Report Type: Spontaneous
  Country: GB (occurrence: GB)
  Receive Date: 20130319
  Receipt Date: 20130319
  Transmission Date: 20140127
  Serious: Yes (Other)
  Sender: FDA-Public Use
  Company Number: GB-VERTEX PHARMACEUTICALS INC.-2013-003763

PATIENT
  Age: 47 Year
  Sex: Male
  Weight: 99 kg

DRUGS (5)
  1. INCIVO [Suspect]
     Indication: HEPATITIS C
     Dosage: 1125 MG, BID
     Route: 048
     Dates: start: 20121119, end: 20130121
  2. REBETOL [Suspect]
     Indication: HEPATITIS C
     Dosage: DOSAGE FORM: UNSPECIFIED
     Route: 048
     Dates: start: 20121119, end: 20130121
  3. VIRAFERONPEG [Suspect]
     Indication: HEPATITIS C
     Dosage: DOSAGE FORM: UNSPECIFIED
     Route: 058
     Dates: start: 20121119, end: 20130121
  4. NYSTATIN [Concomitant]
     Indication: ORAL DISCOMFORT
     Dosage: DOSAGE FORM: UNSPECIFIED
     Route: 048
     Dates: start: 20121220
  5. OMEPRAZOLE [Concomitant]
     Indication: ABDOMINAL PAIN UPPER
     Dosage: DOSAGE FORM: UNSPECIFIED
     Route: 048
     Dates: start: 20130114

REACTIONS (1)
  - Blood creatinine increased [Recovered/Resolved]
